FAERS Safety Report 7091820-6 (Version None)
Quarter: 2010Q4

REPORT INFORMATION
  Report Type: 
  Country: None (occurrence: None)
  Receive Date: 20101109
  Receipt Date: 20101101
  Transmission Date: 20110411
  Serious: Yes (Hospitalization)
  Sender: FDA-Public Use
  Company Number: US-WATSON-2010-14446

PATIENT
  Sex: Female
  Weight: 59 kg

DRUGS (2)
  1. FENTANYL-75 [Suspect]
     Indication: PELVIC PAIN
     Dosage: 1 PATCH, Q 72 HRS
     Route: 062
     Dates: start: 20100801, end: 20101003
  2. FENTANYL-75 [Suspect]
     Dosage: 1 PATCH, Q 72 HRS
     Route: 062
     Dates: start: 20090101, end: 20100801

REACTIONS (11)
  - AMNESIA [None]
  - ASTHENIA [None]
  - DECREASED APPETITE [None]
  - DIZZINESS [None]
  - DRUG DETOXIFICATION [None]
  - DRUG INEFFECTIVE [None]
  - FEELING JITTERY [None]
  - SKIN DISCOLOURATION [None]
  - TREMOR [None]
  - VERTIGO [None]
  - WEIGHT DECREASED [None]
